FAERS Safety Report 24312579 (Version 4)
Quarter: 2024Q4

REPORT INFORMATION
  Report Type: Spontaneous
  Country: US (occurrence: US)
  Receive Date: 20240912
  Receipt Date: 20241129
  Transmission Date: 20250115
  Serious: No
  Sender: PFIZER
  Company Number: US-PFIZER INC-202400252088

PATIENT
  Age: 10 Year
  Sex: Male

DRUGS (1)
  1. GENOTROPIN [Suspect]
     Active Substance: SOMATROPIN
     Dosage: 1.4 MG

REACTIONS (2)
  - Device use error [Unknown]
  - Drug dose omission by device [Unknown]
